FAERS Safety Report 11126743 (Version 3)
Quarter: 2015Q2

REPORT INFORMATION
  Report Type: Spontaneous
  Country: US (occurrence: US)
  Receive Date: 20150520
  Receipt Date: 20150611
  Transmission Date: 20150821
  Serious: Yes (Hospitalization, Other)
  Sender: FDA-Public Use
  Company Number: US-TEVA-562945USA

PATIENT
  Age: 74 Year
  Sex: Female

DRUGS (10)
  1. RANITIDINE [Suspect]
     Active Substance: RANITIDINE\RANITIDINE HYDROCHLORIDE
     Indication: PROPHYLAXIS AGAINST GASTROINTESTINAL ULCER
     Route: 065
  2. ASPIRIN. [Concomitant]
     Active Substance: ASPIRIN
  3. ALPRAZOLAM. [Suspect]
     Active Substance: ALPRAZOLAM
     Indication: ANXIETY
     Route: 065
     Dates: start: 1993
  4. ZANTAC [Suspect]
     Active Substance: RANITIDINE HYDROCHLORIDE
     Indication: PROPHYLAXIS AGAINST GASTROINTESTINAL ULCER
     Route: 065
  5. METAMUCIL [Concomitant]
     Active Substance: PLANTAGO SEED
  6. TIKOSYN [Suspect]
     Active Substance: DOFETILIDE
     Route: 065
  7. WARFARIN [Suspect]
     Active Substance: WARFARIN
     Indication: PROPHYLAXIS
     Dosage: 5 MILLIGRAM DAILY;
  8. XANAX [Suspect]
     Active Substance: ALPRAZOLAM
     Indication: ANXIETY
     Route: 065
  9. IRBESARTAN. [Suspect]
     Active Substance: IRBESARTAN
     Indication: BLOOD PRESSURE
     Dosage: 300 MILLIGRAM DAILY;
     Route: 065
  10. NORCO [Suspect]
     Active Substance: ACETAMINOPHEN\HYDROCODONE BITARTRATE
     Indication: BREAKTHROUGH PAIN
     Dosage: 5,35 MG, 1 TABLET EVERY 6 HOURS, TWICE DAILY
     Route: 065

REACTIONS (21)
  - Large intestinal ulcer [Unknown]
  - Neuralgia [Unknown]
  - Rectal haemorrhage [Unknown]
  - Infection [Unknown]
  - Heart rate increased [Recovered/Resolved]
  - Blood viscosity decreased [Unknown]
  - Pain [Recovered/Resolved]
  - Proctalgia [Unknown]
  - Faeces hard [Unknown]
  - Stress [Unknown]
  - Nerve injury [Unknown]
  - Haemorrhoids [Unknown]
  - Cardiac disorder [Recovered/Resolved]
  - Activities of daily living impaired [Unknown]
  - Blood pressure increased [Recovered/Resolved]
  - Anal fistula [Unknown]
  - Anorectal discomfort [Unknown]
  - Depression [Unknown]
  - Atrial fibrillation [Recovered/Resolved]
  - Abscess [Unknown]
  - Rectal fissure [Unknown]

NARRATIVE: CASE EVENT DATE: 20130411
